FAERS Safety Report 7120599-4 (Version None)
Quarter: 2010Q4

REPORT INFORMATION
  Report Type: 
  Country: None (occurrence: None)
  Receive Date: 20101122
  Receipt Date: 20101122
  Transmission Date: 20110411
  Serious: Yes (Other)
  Sender: FDA-Public Use
  Company Number: None

PATIENT
  Age: 27 Year
  Sex: Female
  Weight: 67.1324 kg

DRUGS (1)
  1. DOMPERIDONE [Suspect]
     Indication: VOMITING
     Dosage: 10 MG 1 WITH MEAL 15-10
     Dates: start: 20100930

REACTIONS (5)
  - ABDOMINAL DISTENSION [None]
  - DIARRHOEA [None]
  - DYSPNOEA [None]
  - FLATULENCE [None]
  - OEDEMA PERIPHERAL [None]
